FAERS Safety Report 6879374-8 (Version None)
Quarter: 2010Q3

REPORT INFORMATION
  Report Type: 
  Country: None (occurrence: None)
  Receive Date: 20100728
  Receipt Date: 20100722
  Transmission Date: 20110219
  Serious: Yes (Other)
  Sender: FDA-Public Use
  Company Number: DE-SANOFI-AVENTIS-F04200900003

PATIENT
  Age: 50 Year
  Sex: Male

DRUGS (7)
  1. OXALIPLATIN [Suspect]
     Route: 041
     Dates: start: 20080716, end: 20080716
  2. FLUOROURACIL [Suspect]
     Route: 041
     Dates: start: 20080716, end: 20080716
  3. GRANISETRON HCL [Concomitant]
     Indication: PRODUCT USED FOR UNKNOWN INDICATION
     Dates: start: 20080716
  4. DEXAMETHASONE [Concomitant]
     Indication: PRODUCT USED FOR UNKNOWN INDICATION
     Dates: start: 20080716
  5. NEXIUM [Concomitant]
     Indication: PRODUCT USED FOR UNKNOWN INDICATION
     Dates: start: 20070905
  6. FOLINIC ACID [Concomitant]
     Indication: PRODUCT USED FOR UNKNOWN INDICATION
     Dates: start: 20080716
  7. CLEXANE [Concomitant]
     Indication: PRODUCT USED FOR UNKNOWN INDICATION
     Dates: start: 20070803

REACTIONS (2)
  - DYSPNOEA EXERTIONAL [None]
  - PHRENIC NERVE PARALYSIS [None]
